FAERS Safety Report 9819332 (Version 1)
Quarter: 2014Q1

REPORT INFORMATION
  Report Type: Spontaneous
  Country: US (occurrence: US)
  Receive Date: 20140115
  Receipt Date: 20140115
  Transmission Date: 20141002
  Serious: No
  Sender: FDA-Public Use
  Company Number: US-BAYER-2014-005903

PATIENT
  Sex: Female

DRUGS (3)
  1. BETASERON [Suspect]
     Indication: PRODUCT USED FOR UNKNOWN INDICATION
     Dosage: UNK UNK, QOD
     Route: 058
     Dates: start: 2003, end: 2013
  2. AMPYRA [Suspect]
     Indication: MULTIPLE SCLEROSIS
     Dosage: 10 MG, EVERY 12 HRS
     Route: 048
  3. DIMETHYL FUMARATE [Concomitant]
     Indication: MULTIPLE SCLEROSIS
     Dosage: 240 MG, BID
     Route: 048
     Dates: start: 2013

REACTIONS (5)
  - Influenza like illness [Recovered/Resolved]
  - Injection site urticaria [Recovered/Resolved]
  - Fatigue [Unknown]
  - Pain in extremity [Not Recovered/Not Resolved]
  - Memory impairment [Unknown]
